FAERS Safety Report 9269057 (Version 2)
Quarter: 2013Q2

REPORT INFORMATION
  Report Type: Spontaneous
  Country: JP (occurrence: JP)
  Receive Date: 20130503
  Receipt Date: 20130524
  Transmission Date: 20140414
  Serious: Yes (Hospitalization)
  Sender: FDA-Public Use
  Company Number: JP-ABBOTT-13X-087-1081756-00

PATIENT
  Age: 73 Year
  Sex: Female

DRUGS (7)
  1. KLARICID [Suspect]
     Indication: ATYPICAL MYCOBACTERIAL INFECTION
     Dates: start: 20130405, end: 20130424
  2. RIFAMPICIN [Suspect]
     Indication: ATYPICAL MYCOBACTERIAL INFECTION
     Route: 048
     Dates: start: 20130405, end: 20130424
  3. ETHAMBUTOL HYDROCHLORIDE [Concomitant]
     Indication: ATYPICAL MYCOBACTERIAL INFECTION
     Route: 048
     Dates: start: 20130405, end: 20130424
  4. TIZANIDINE HYDROCHLORIDE [Concomitant]
     Indication: SPINAL OSTEOARTHRITIS
     Dates: start: 20110603
  5. TIZANIDINE HYDROCHLORIDE [Concomitant]
     Indication: SPINAL OSTEOARTHRITIS
  6. PREGABALIN [Concomitant]
     Indication: SPINAL OSTEOARTHRITIS
     Dates: start: 20120601
  7. PREGABALIN [Concomitant]
     Indication: SPINAL OSTEOARTHRITIS

REACTIONS (5)
  - Glomerulonephritis acute [Recovered/Resolved]
  - Protein urine present [Recovered/Resolved]
  - Blood urine present [Recovered/Resolved]
  - Urinary casts [Recovered/Resolved]
  - C-reactive protein increased [Recovered/Resolved]
